FAERS Safety Report 8847228 (Version 2)
Quarter: 2013Q1

REPORT INFORMATION
  Report Type: Spontaneous
  Country: BR (occurrence: BR)
  Receive Date: 20121018
  Receipt Date: 20130329
  Transmission Date: 20140127
  Serious: Yes (Other)
  Sender: FDA-Public Use
  Company Number: PHHY2012BR092372

PATIENT
  Sex: Female

DRUGS (9)
  1. ACLASTA [Suspect]
     Indication: OSTEOPOROSIS
     Dosage: 5 MG, 1 APPLICATION PER YEAR
     Route: 042
  2. ACLASTA [Suspect]
     Dosage: 5 MG, 1 APPLICATION PER YEAR
     Route: 042
  3. TECTA [Concomitant]
     Indication: GASTROOESOPHAGEAL REFLUX DISEASE
     Dosage: 2  TABLETS DAILY
     Route: 048
  4. TECTA [Concomitant]
     Indication: HIATUS HERNIA
  5. MOTILIUM//DOMPERIDONE [Concomitant]
     Indication: GASTROOESOPHAGEAL REFLUX DISEASE
     Dosage: 2 TABLETS 3 TIMES DAILY
     Route: 048
  6. MOTILIUM//DOMPERIDONE [Concomitant]
     Indication: HIATUS HERNIA
  7. RIVOTRIL [Concomitant]
     Indication: FEAR
     Dosage: 2 TABLETS DAILY
     Route: 048
  8. DEPURA [Concomitant]
     Indication: BLOOD CALCIUM
     Dosage: ONCE A WEEK
     Route: 048
  9. APRAZ [Concomitant]
     Indication: SLEEP DISORDER
     Dosage: AT NIGHT
     Route: 048

REACTIONS (7)
  - Fracture [Not Recovered/Not Resolved]
  - Dementia Alzheimer^s type [Not Recovered/Not Resolved]
  - Cholelithiasis [Recovered/Resolved]
  - Pollakiuria [Not Recovered/Not Resolved]
  - Gait disturbance [Not Recovered/Not Resolved]
  - Gastrooesophageal reflux disease [Not Recovered/Not Resolved]
  - Hyperhidrosis [Not Recovered/Not Resolved]
